FAERS Safety Report 21184987 (Version 1)
Quarter: 2022Q3

REPORT INFORMATION
  Report Type: Spontaneous
  Country: US (occurrence: None)
  Receive Date: 20220806
  Receipt Date: 20220806
  Transmission Date: 20221027
  Serious: Yes (Disabling, Other)
  Sender: FDA-Public Use
  Company Number: None

PATIENT
  Age: 30 Year
  Sex: Female
  Weight: 44.1 kg

DRUGS (3)
  1. DEXTROAMPHET SACCHARAT, AMPHET ASPARTATE, DEXTROAMPHET SULFATE AND AMP [Suspect]
     Active Substance: AMPHETAMINE ASPARTATE\AMPHETAMINE SULFATE\DEXTROAMPHETAMINE SACCHARATE\DEXTROAMPHETAMINE SULFATE
     Indication: Attention deficit hyperactivity disorder
     Dosage: OTHER QUANTITY : 30 TABLET(S);?FREQUENCY : DAILY;?
     Route: 048
     Dates: start: 20220805, end: 20220806
  2. generic 10 mg adderall IR 1x/day [Concomitant]
  3. generic 30 mg adderall XR 1x/day [Concomitant]

REACTIONS (5)
  - Tremor [None]
  - Confusional state [None]
  - Dyspnoea [None]
  - Product substitution issue [None]
  - Product substitution issue [None]

NARRATIVE: CASE EVENT DATE: 20220805
